FAERS Safety Report 9124698 (Version 1)
Quarter: 2013Q1

REPORT INFORMATION
  Report Type: Spontaneous
  Country: NZ (occurrence: NZ)
  Receive Date: 20130227
  Receipt Date: 20130227
  Transmission Date: 20140127
  Serious: Yes (Hospitalization)
  Sender: FDA-Public Use
  Company Number: NZ-B.I. PHARMACEUTICALS,INC./RIDGEFIELD-2013-AU-00098AU

PATIENT
  Age: 89 Year
  Sex: Male

DRUGS (4)
  1. PRADAXA [Suspect]
     Indication: ATRIAL FIBRILLATION
     Dosage: 150 MG
  2. ATORVASTATIN [Concomitant]
  3. ISOSORBIDE MONONITRATE [Concomitant]
  4. BETA BLOCKER [Concomitant]

REACTIONS (1)
  - Angina unstable [Recovered/Resolved]
